FAERS Safety Report 13878413 (Version 1)
Quarter: 2017Q3

REPORT INFORMATION
  Report Type: Spontaneous
  Country: US (occurrence: US)
  Receive Date: 20170817
  Receipt Date: 20170817
  Transmission Date: 20171127
  Serious: No
  Sender: FDA-Public Use
  Company Number: US-ROCHE-1917822

PATIENT
  Sex: Female
  Weight: 67.19 kg

DRUGS (9)
  1. MEGACE ES [Concomitant]
     Active Substance: MEGESTROL ACETATE
  2. ALEVE [Concomitant]
     Active Substance: NAPROXEN SODIUM
     Route: 048
  3. BIOTIN [Concomitant]
     Active Substance: BIOTIN
     Route: 048
  4. ALECENSA [Suspect]
     Active Substance: ALECTINIB HYDROCHLORIDE
     Indication: TRACHEAL CANCER
     Dosage: TAKE 4 CAPSULES 150 MG TWICE DAILY
     Route: 048
     Dates: start: 20161019, end: 20170322
  5. FISH OIL [Concomitant]
     Active Substance: FISH OIL
     Route: 048
  6. GLUCOSAMINE CHONDROITIN COMPLEX [Concomitant]
     Active Substance: CHONDROITIN SULFATE (BOVINE)\GLUCOSAMINE HYDROCHLORIDE
     Route: 048
  7. SYMBICORT [Concomitant]
     Active Substance: BUDESONIDE\FORMOTEROL FUMARATE DIHYDRATE
     Route: 065
  8. LOVENOX [Concomitant]
     Active Substance: ENOXAPARIN SODIUM
     Route: 058
  9. SPIRIVA [Concomitant]
     Active Substance: TIOTROPIUM BROMIDE MONOHYDRATE

REACTIONS (2)
  - No adverse event [Unknown]
  - Drug ineffective [Unknown]
